FAERS Safety Report 11321817 (Version 2)
Quarter: 2015Q3

REPORT INFORMATION
  Report Type: Spontaneous
  Country: TR (occurrence: TR)
  Receive Date: 20150729
  Receipt Date: 20150826
  Transmission Date: 20151125
  Serious: Yes (Other)
  Sender: FDA-Public Use
  Company Number: TR-PFIZER INC-2015249466

PATIENT
  Age: 26 Year
  Sex: Male
  Weight: 94 kg

DRUGS (1)
  1. CHAMPIX [Suspect]
     Active Substance: VARENICLINE TARTRATE
     Indication: SMOKING CESSATION THERAPY
     Dosage: 1 MG, 2X/DAY
     Dates: start: 201507

REACTIONS (2)
  - Haemoptysis [Recovered/Resolved]
  - Upper respiratory tract irritation [Recovered/Resolved]

NARRATIVE: CASE EVENT DATE: 201507
